FAERS Safety Report 7587622-4 (Version None)
Quarter: 2011Q3

REPORT INFORMATION
  Report Type: 
  Country: None (occurrence: None)
  Receive Date: 20110704
  Receipt Date: 20110627
  Transmission Date: 20111222
  Serious: Yes (Death, Other)
  Sender: FDA-Public Use
  Company Number: PHHY2011MX56525

PATIENT
  Age: 87 Year
  Sex: Male

DRUGS (3)
  1. AMLODIPINE [Concomitant]
  2. DIOVAN [Suspect]
     Indication: HYPERTENSION
     Dosage: 0.5 DF TABLET OF 160 MG PER DAY
     Route: 048
     Dates: end: 20091101
  3. LOSARTAN POTASSIUM [Suspect]

REACTIONS (5)
  - DIABETES MELLITUS [None]
  - FLUID RETENTION [None]
  - RENAL FAILURE ACUTE [None]
  - WRONG TECHNIQUE IN DRUG USAGE PROCESS [None]
  - MYOCARDIAL INFARCTION [None]
